FAERS Safety Report 8723870 (Version 3)
Quarter: 2012Q4

REPORT INFORMATION
  Report Type: 
  Country: US (occurrence: US)
  Receive Date: 20120815
  Receipt Date: 20120920
  Transmission Date: 20130627
  Serious: No
  Sender: FDA-Public Use
  Company Number: US-PFIZER INC-2012198239

PATIENT
  Age: 45 Year
  Sex: Female
  Weight: 94.33 kg

DRUGS (9)
  1. VENLAFAXINE HYDROCHLORIDE [Suspect]
     Indication: HOT FLUSH
     Dosage: 75mg, daily
     Route: 048
     Dates: start: 2008, end: 2008
  2. VENLAFAXINE HYDROCHLORIDE [Suspect]
     Indication: MOOD SWINGS
  3. VENLAFAXINE HYDROCHLORIDE [Suspect]
     Indication: ANTIDEPRESSANT THERAPY
  4. NEXIUM [Concomitant]
     Indication: GASTROOESOPHAGEAL REFLUX DISEASE
     Dosage: 40 mg, daily
  5. FLEXERIL [Concomitant]
     Dosage: 10 mg, 1x/day
  6. XANAX [Concomitant]
     Dosage: 1 mg, HS
  7. PHENTERMINE [Concomitant]
     Dosage: 37.5 mg, 1x/day
  8. GABAPENTIN [Concomitant]
     Dosage: 300 mg, 2x/day
  9. LORTAB [Concomitant]
     Dosage: 7.5/500, Q4-6H

REACTIONS (4)
  - Malaise [Recovered/Resolved]
  - Headache [Recovered/Resolved]
  - Vomiting [Recovered/Resolved]
  - Drug intolerance [Unknown]
